FAERS Safety Report 7445622-9 (Version None)
Quarter: 2011Q2

REPORT INFORMATION
  Report Type: 
  Country: None (occurrence: None)
  Receive Date: 20110429
  Receipt Date: 20110426
  Transmission Date: 20111010
  Serious: Yes (Death)
  Sender: FDA-Public Use
  Company Number: FR-SANOFI-AVENTIS-2011SA025667

PATIENT
  Age: 57 Year
  Sex: Male

DRUGS (6)
  1. PLAVIX [Suspect]
     Indication: PROPHYLAXIS
     Route: 048
  2. GARDENAL [Concomitant]
  3. TENORMIN [Concomitant]
  4. ELISOR [Concomitant]
  5. ZYRTEC [Concomitant]
  6. MOPRAL [Concomitant]

REACTIONS (2)
  - THROMBOCYTOPENIA [None]
  - CEREBRAL HAEMATOMA [None]
